FAERS Safety Report 5341378-4 (Version None)
Quarter: 2007Q2

REPORT INFORMATION
  Report Type: 
  Country: None (occurrence: None)
  Receive Date: 20070404
  Receipt Date: 20061219
  Transmission Date: 20071010
  Serious: Yes (Other)
  Sender: FDA-Public Use
  Company Number: 2006128713

PATIENT
  Age: 54 Year
  Sex: Female
  Weight: 93 kg

DRUGS (2)
  1. GEODON [Suspect]
     Indication: MAJOR DEPRESSION
     Dosage: 160 MG
     Dates: start: 20040601, end: 20060901
  2. GEODON [Suspect]
     Indication: POST-TRAUMATIC STRESS DISORDER
     Dosage: 160 MG
     Dates: start: 20040601, end: 20060901

REACTIONS (2)
  - MUSCLE TWITCHING [None]
  - TARDIVE DYSKINESIA [None]
